FAERS Safety Report 6068371-0 (Version None)
Quarter: 2009Q1

REPORT INFORMATION
  Report Type: 
  Country: None (occurrence: None)
  Receive Date: 20090206
  Receipt Date: 20090204
  Transmission Date: 20090719
  Serious: Yes (Life-Threatening, Hospitalization, Other)
  Sender: FDA-Public Use
  Company Number: PHHO2008BR13952

PATIENT
  Sex: Female
  Weight: 74.09 kg

DRUGS (2)
  1. TASIGNA [Suspect]
     Indication: CHRONIC MYELOID LEUKAEMIA
     Dosage: 800 MG, QD
     Route: 048
     Dates: start: 20080312, end: 20081122
  2. PLATELETS [Concomitant]

REACTIONS (9)
  - AUTOIMMUNE THROMBOCYTOPENIA [None]
  - ECCHYMOSIS [None]
  - EPISTAXIS [None]
  - FEBRILE NEUTROPENIA [None]
  - MALIGNANT NEOPLASM PROGRESSION [None]
  - OEDEMA [None]
  - PAIN [None]
  - PANCYTOPENIA [None]
  - PYREXIA [None]
